FAERS Safety Report 6043020-6 (Version None)
Quarter: 2009Q1

REPORT INFORMATION
  Report Type: 
  Country: None (occurrence: None)
  Receive Date: 20090119
  Receipt Date: 20090106
  Transmission Date: 20090719
  Serious: Yes (Hospitalization, Other)
  Sender: FDA-Public Use
  Company Number: FR-ELI_LILLY_AND_COMPANY-FR200811005705

PATIENT
  Sex: Female

DRUGS (5)
  1. FORTEO [Suspect]
     Indication: OSTEOPOROSIS
     Dosage: 20 UG, DAILY (1/D)
     Route: 058
     Dates: start: 20070913, end: 20081123
  2. SECTRAL [Concomitant]
     Indication: HYPERTENSION
     Dosage: 200 MG, DAILY (1/D)
     Route: 048
     Dates: start: 20050101
  3. INDAPAMIDE [Concomitant]
     Indication: HYPERTENSION
     Dosage: UNK, UNKNOWN
     Route: 048
  4. TAHOR [Concomitant]
     Indication: HYPERCHOLESTEROLAEMIA
     Dosage: 40 MG, DAILY (1/D)
     Route: 048
     Dates: start: 20050101
  5. ASPEGIC 325 [Concomitant]
     Indication: HYPERTENSION
     Dosage: 100 MG, DAILY (1/D)
     Route: 048
     Dates: start: 20050101

REACTIONS (2)
  - ARTERIOSCLEROSIS [None]
  - CEREBRAL INFARCTION [None]
